FAERS Safety Report 8066467-5 (Version None)
Quarter: 2012Q1

REPORT INFORMATION
  Report Type: 
  Country: None (occurrence: None)
  Receive Date: 20120124
  Receipt Date: 20120116
  Transmission Date: 20120608
  Serious: Yes (Other)
  Sender: FDA-Public Use
  Company Number: US-BAYER-2011-042871

PATIENT
  Age: 43 Year
  Sex: Female
  Weight: 126.53 kg

DRUGS (4)
  1. METFORMIN HYDROCHLORIDE [Concomitant]
     Indication: DIABETES MELLITUS
  2. METFORMIN HYDROCHLORIDE [Concomitant]
     Indication: POLYCYSTIC OVARIES
     Dosage: 850 MG, QD
     Route: 048
     Dates: start: 20030101
  3. LISINOPRIL [Concomitant]
     Indication: HYPERTENSION
     Dosage: 10 MG, QD
     Route: 048
     Dates: start: 19820101
  4. YASMIN [Suspect]
     Indication: CONTRACEPTION
     Dosage: UNK
     Route: 048
     Dates: start: 20030206, end: 20040527

REACTIONS (7)
  - EMOTIONAL DISTRESS [None]
  - DEEP VEIN THROMBOSIS [None]
  - INJURY [None]
  - PAIN [None]
  - PAIN IN EXTREMITY [None]
  - OEDEMA PERIPHERAL [None]
  - ANXIETY [None]
